FAERS Safety Report 13553866 (Version 1)
Quarter: 2017Q2

REPORT INFORMATION
  Report Type: Spontaneous
  Country: US (occurrence: US)
  Receive Date: 20170517
  Receipt Date: 20170517
  Transmission Date: 20170830
  Serious: Yes (Other)
  Sender: FDA-Public Use
  Company Number: US-TEVA-769505USA

PATIENT
  Age: 77 Year
  Sex: Female

DRUGS (3)
  1. NORFLOXAZINE [Suspect]
     Active Substance: NORFLOXACIN
     Route: 065
  2. OXAZEPAM. [Suspect]
     Active Substance: OXAZEPAM
     Route: 065
  3. CLOZAPINE. [Suspect]
     Active Substance: CLOZAPINE
     Route: 065

REACTIONS (2)
  - Drug administration error [Unknown]
  - Coma [Recovered/Resolved]
